FAERS Safety Report 16251510 (Version 1)
Quarter: 2019Q2

REPORT INFORMATION
  Report Type: Spontaneous
  Country: US (occurrence: US)
  Receive Date: 20190429
  Receipt Date: 20190429
  Transmission Date: 20190711
  Serious: No
  Sender: FDA-Public Use
  Company Number: US-BAYER-2019-082910

PATIENT
  Age: 74 Year
  Sex: Male
  Weight: 109 kg

DRUGS (2)
  1. ALEVE [Suspect]
     Active Substance: NAPROXEN SODIUM
     Indication: GOUT
     Dosage: 4 DF
     Route: 048
  2. ALEVE [Suspect]
     Active Substance: NAPROXEN SODIUM
     Indication: GOUT
     Dosage: 2 IN THE 1ST HOUR AND 1 MORE IN 4 HRS
     Route: 048
     Dates: start: 201904, end: 20190423

REACTIONS (3)
  - Incorrect dose administered [Unknown]
  - Drug effective for unapproved indication [Unknown]
  - Expired product administered [Unknown]
